FAERS Safety Report 10336766 (Version 1)
Quarter: 2014Q3

REPORT INFORMATION
  Report Type: Spontaneous
  Country: US (occurrence: US)
  Receive Date: 20140723
  Receipt Date: 20140723
  Transmission Date: 20150326
  Serious: No
  Sender: FDA-Public Use
  Company Number: US-GALDERMA-US13003491

PATIENT
  Age: 59 Year
  Sex: Female

DRUGS (4)
  1. COVER GIRL BLUSH [Concomitant]
     Route: 061
  2. UNKOWN BABY WIPES [Concomitant]
     Indication: THERAPEUTIC SKIN CARE TOPICAL
     Route: 061
  3. ORACEA [Suspect]
     Active Substance: DOXYCYCLINE
     Indication: ROSACEA
     Dosage: 40 MG
     Route: 048
     Dates: start: 201307, end: 201308
  4. BANANA BOAT SPORT PERFORMANCE SUNSCREEN SPF 30 [Concomitant]
     Indication: PROPHYLAXIS AGAINST SOLAR RADIATION
     Route: 061
     Dates: end: 201310

REACTIONS (1)
  - Drug ineffective [Not Recovered/Not Resolved]

NARRATIVE: CASE EVENT DATE: 201307
